FAERS Safety Report 10214285 (Version 1)
Quarter: 2014Q2

REPORT INFORMATION
  Report Type: Spontaneous
  Country: US (occurrence: US)
  Receive Date: 20140603
  Receipt Date: 20140603
  Transmission Date: 20141212
  Serious: No
  Sender: FDA-Public Use
  Company Number: US-PFIZER INC-2014150380

PATIENT
  Sex: Female
  Weight: 108.9 kg

DRUGS (3)
  1. NEOMYCIN SULFATE [Suspect]
  2. LYRICA [Suspect]
  3. ZANAFLEX [Suspect]

REACTIONS (1)
  - Drug hypersensitivity [Unknown]
